FAERS Safety Report 25362194 (Version 2)
Quarter: 2025Q2

REPORT INFORMATION
  Report Type: Spontaneous
  Country: ES (occurrence: ES)
  Receive Date: 20250527
  Receipt Date: 20250611
  Transmission Date: 20250717
  Serious: Yes (Hospitalization, Other)
  Sender: NOVARTIS
  Company Number: ES-002147023-NVSC2025ES083751

PATIENT
  Age: 36 Year
  Sex: Female

DRUGS (1)
  1. KESIMPTA [Suspect]
     Active Substance: OFATUMUMAB
     Indication: Multiple sclerosis
     Route: 058
     Dates: start: 20231213, end: 20250513

REACTIONS (7)
  - Febrile neutropenia [Recovered/Resolved]
  - Pyrexia [Recovered/Resolved]
  - Pharyngotonsillitis [Recovered/Resolved]
  - Rhinitis [Unknown]
  - Mouth ulceration [Recovered/Resolved]
  - Lymphopenia [Recovered/Resolved]
  - Monocyte count abnormal [Recovered/Resolved]

NARRATIVE: CASE EVENT DATE: 20241201
